FAERS Safety Report 14541897 (Version 1)
Quarter: 2018Q1

REPORT INFORMATION
  Report Type: Spontaneous
  Country: US (occurrence: US)
  Receive Date: 20180216
  Receipt Date: 20180216
  Transmission Date: 20180509
  Serious: Yes (Other)
  Sender: FDA-Public Use
  Company Number: None

PATIENT
  Age: 47 Year
  Sex: Female
  Weight: 57.15 kg

DRUGS (4)
  1. MOISTURIZER (IN HYPOALLERGENIC CREAM BASE) [Concomitant]
  2. LUNESTA [Concomitant]
     Active Substance: ESZOPICLONE
  3. DUPIXENT [Suspect]
     Active Substance: DUPILUMAB
     Indication: DERMATITIS ATOPIC
     Route: 058
     Dates: start: 20170517, end: 20170920
  4. TRAZODONE [Concomitant]
     Active Substance: TRAZODONE HYDROCHLORIDE

REACTIONS (14)
  - Vitreous floaters [None]
  - Oral discomfort [None]
  - Photophobia [None]
  - Erythema [None]
  - Eye pain [None]
  - Rash [None]
  - Skin exfoliation [None]
  - Eye irritation [None]
  - Neuralgia [None]
  - Blepharitis [None]
  - Alopecia [None]
  - Dry skin [None]
  - Paraesthesia [None]
  - Madarosis [None]

NARRATIVE: CASE EVENT DATE: 20170920
